FAERS Safety Report 6801809-7 (Version None)
Quarter: 2010Q2

REPORT INFORMATION
  Report Type: 
  Country: None (occurrence: None)
  Receive Date: 20100629
  Receipt Date: 20100624
  Transmission Date: 20101027
  Serious: No
  Sender: FDA-Public Use
  Company Number: US-TEVA-239033USA

PATIENT
  Sex: Male

DRUGS (1)
  1. COPAXONE [Suspect]
     Indication: MULTIPLE SCLEROSIS
     Route: 058
     Dates: start: 20040915

REACTIONS (4)
  - CHEST DISCOMFORT [None]
  - MALAISE [None]
  - MUSCULOSKELETAL STIFFNESS [None]
  - TREMOR [None]
